FAERS Safety Report 5066480-6 (Version None)
Quarter: 2006Q3

REPORT INFORMATION
  Report Type: 
  Country: None (occurrence: None)
  Receive Date: 20060717
  Receipt Date: 20050615
  Transmission Date: 20061208
  Serious: Yes (Death, Life-Threatening, Other)
  Sender: FDA-Public Use
  Company Number: 2005-06-0970

PATIENT
  Age: 57 Year
  Sex: Male

DRUGS (8)
  1. INTEGRILLIN INJECTABLE SOLUTION (EPTIFIBATIDE) [Suspect]
     Indication: MYOCARDIAL INFARCTION
     Dosage: 10-7ML INTRAVENOUS
     Route: 042
     Dates: start: 20050613, end: 20050613
  2. HEPARIN [Suspect]
     Indication: ANTICOAGULANT THERAPY
     Dosage: 2500 IU Q6HR INTRAVENOUS
     Route: 042
  3. ECOSPRIN (ACETYLSALICYLIC ACID) [Suspect]
     Indication: ANTIPLATELET THERAPY
     Dosage: 150 MG OD ORAL
     Route: 048
  4. CLOPILET (CLOPIDOGREL) [Concomitant]
     Indication: ANTIPLATELET THERAPY
     Dosage: 75 MG 2 BID ORAL
     Route: 048
  5. BETALOC [Concomitant]
  6. ISOSORBIDE MONONITRATE [Concomitant]
  7. VASODILATOR [Concomitant]
  8. RAMIPRIL [Concomitant]

REACTIONS (3)
  - EPISTAXIS [None]
  - PULMONARY OEDEMA [None]
  - RETROPERITONEAL HAEMORRHAGE [None]
